FAERS Safety Report 23767022 (Version 2)
Quarter: 2024Q2

REPORT INFORMATION
  Report Type: Report from Study
  Country: BG (occurrence: BG)
  Receive Date: 20240422
  Receipt Date: 20240525
  Transmission Date: 20240716
  Serious: Yes (Hospitalization)
  Sender: FDA-Public Use
  Company Number: BG-ABBVIE-5727699

PATIENT
  Age: 45 Year
  Sex: Male

DRUGS (1)
  1. RINVOQ [Suspect]
     Active Substance: UPADACITINIB
     Indication: Ankylosing spondylitis
     Dosage: 1 TABLET?LAST ADMIN DATE: 2024
     Route: 048
     Dates: start: 20240103

REACTIONS (1)
  - Lyme disease [Recovering/Resolving]

NARRATIVE: CASE EVENT DATE: 20240101
